FAERS Safety Report 18551663 (Version 1)
Quarter: 2020Q4

REPORT INFORMATION
  Report Type: Spontaneous
  Country: US (occurrence: US)
  Receive Date: 20201126
  Receipt Date: 20201126
  Transmission Date: 20210114
  Serious: Yes (Life-Threatening, Hospitalization, Disabling, Other)
  Sender: FDA-Public Use
  Company Number: US-009507513-2011USA011095

PATIENT
  Age: 58 Year
  Sex: Male
  Weight: 77.18 kg

DRUGS (1)
  1. PRINIVIL [Suspect]
     Active Substance: LISINOPRIL
     Indication: HYPERTENSION
     Route: 048
     Dates: start: 201404, end: 2014

REACTIONS (4)
  - Weight decreased [Unknown]
  - Amyotrophic lateral sclerosis [Not Recovered/Not Resolved]
  - Angioedema [Recovered/Resolved]
  - Aphasia [Not Recovered/Not Resolved]

NARRATIVE: CASE EVENT DATE: 201405
